FAERS Safety Report 7077970-9 (Version None)
Quarter: 2010Q4

REPORT INFORMATION
  Report Type: 
  Country: None (occurrence: None)
  Receive Date: 20101101
  Receipt Date: 20101011
  Transmission Date: 20110411
  Serious: No
  Sender: FDA-Public Use
  Company Number: US-BAYER-201021577BCC

PATIENT
  Sex: Female
  Weight: 83 kg

DRUGS (10)
  1. ALEVE (CAPLET) [Suspect]
     Dosage: TOTAL DAILY DOSE: 440 MG  UNIT DOSE: 220 MG
     Route: 048
     Dates: start: 20101011, end: 20101011
  2. CITRACAL MAXIMUM CAPLETS + D [Suspect]
     Dosage: CONSUMER TAKES CITRACAL DAILY.
     Route: 048
  3. ASPIRIN [Suspect]
     Dosage: CONSUMER TAKES ASPIRIN DAILY. BOTTLE COUNT 81MG.
     Route: 048
  4. BLOOD PRESSURE MEDICATIONS [Concomitant]
     Route: 065
  5. CHOLESTORAL MEDICATION [Concomitant]
     Route: 065
  6. NASAL SPRAY [Concomitant]
     Indication: BONE DENSITY DECREASED
     Route: 045
  7. COQ-10 [Concomitant]
     Route: 065
  8. VITAMIN SUPPLEMENT FISH OIL [Concomitant]
     Dosage: 1000 UNITS
     Route: 065
  9. CENTRUM SILVER MULTI-VITAMIN [Concomitant]
     Route: 065
  10. FLU SHOT [Concomitant]
     Route: 065
     Dates: start: 20101010, end: 20101010

REACTIONS (3)
  - CHEST PAIN [None]
  - DYSPEPSIA [None]
  - PRURITUS [None]
